FAERS Safety Report 15642188 (Version 1)
Quarter: 2018Q4

REPORT INFORMATION
  Report Type: Report from Study
  Country: None (occurrence: DK)
  Receive Date: 20181121
  Receipt Date: 20181121
  Transmission Date: 20190205
  Serious: Yes (Life-Threatening)
  Sender: FDA-Public Use
  Company Number: DK-BAUSCH-BL-2018-032002

PATIENT
  Age: 66 Year
  Sex: Female

DRUGS (3)
  1. QUETIAPINE. [Interacting]
     Active Substance: QUETIAPINE
     Indication: ANXIETY
     Dosage: 100 MG (4 X 25 MG/DAY)
     Route: 048
  2. CHLORPROTHIXENE [Interacting]
     Active Substance: CHLORPROTHIXENE
     Indication: PRODUCT USED FOR UNKNOWN INDICATION
     Dosage: 250 MG PRN (5 X 50 MG/DAY)
     Route: 048
  3. VENLAFAXINE [Suspect]
     Active Substance: VENLAFAXINE HYDROCHLORIDE
     Indication: DEPRESSION
     Route: 048

REACTIONS (2)
  - Drug interaction [Unknown]
  - Arrhythmia [Unknown]
